FAERS Safety Report 24584650 (Version 1)
Quarter: 2024Q4

REPORT INFORMATION
  Report Type: Other
  Country: US (occurrence: US)
  Receive Date: 20241106
  Receipt Date: 20241106
  Transmission Date: 20250115
  Serious: Yes (Hospitalization)
  Sender: B BRAUN
  Company Number: US-B.Braun Medical Inc.-2164516

PATIENT
  Age: 58 Year
  Sex: Male

DRUGS (8)
  1. LIDOCAINE HYDROCHLORIDE [Suspect]
     Active Substance: LIDOCAINE HYDROCHLORIDE
     Indication: General anaesthesia
  2. PROPOFOL [Suspect]
     Active Substance: PROPOFOL
  3. Lactated-Ringer^s solution [Concomitant]
  4. DEXAMETHASONE [Concomitant]
     Active Substance: DEXAMETHASONE
  5. ONDANSETRON [Concomitant]
     Active Substance: ONDANSETRON
  6. SUGAMMADEX [Suspect]
     Active Substance: SUGAMMADEX
  7. FENTANYL [Suspect]
     Active Substance: FENTANYL
  8. ROCURONIUM [Suspect]
     Active Substance: ROCURONIUM BROMIDE

REACTIONS (2)
  - Priapism [Recovered/Resolved]
  - Off label use [Recovered/Resolved]
